FAERS Safety Report 5508350-2 (Version None)
Quarter: 2007Q4

REPORT INFORMATION
  Report Type: 
  Country: None (occurrence: None)
  Receive Date: 20071106
  Receipt Date: 20071101
  Transmission Date: 20080405
  Serious: Yes (Other)
  Sender: FDA-Public Use
  Company Number: GB-MERCK-0711GBR00024

PATIENT
  Age: 47 Year
  Sex: Male

DRUGS (4)
  1. TRUSOPT [Suspect]
     Indication: GLAUCOMA
     Route: 047
     Dates: start: 20061201
  2. TRUSOPT [Suspect]
     Indication: OPTIC ISCHAEMIC NEUROPATHY
     Route: 047
     Dates: start: 20061201
  3. PROPRANOLOL HYDROCHLORIDE [Concomitant]
     Route: 048
  4. ZOTON [Concomitant]
     Route: 048

REACTIONS (2)
  - ANOSMIA [None]
  - DYSGEUSIA [None]
